FAERS Safety Report 16213323 (Version 2)
Quarter: 2019Q2

REPORT INFORMATION
  Report Type: Spontaneous
  Country: DE (occurrence: DE)
  Receive Date: 20190418
  Receipt Date: 20190506
  Transmission Date: 20190711
  Serious: Yes (Life-Threatening, Hospitalization, Other)
  Sender: FDA-Public Use
  Company Number: DE-BAUSCH-BL-2019-011076

PATIENT
  Sex: Female
  Weight: 65 kg

DRUGS (2)
  1. ALDARA [Suspect]
     Active Substance: IMIQUIMOD
     Indication: ACTINIC KERATOSIS
     Dosage: FIVE TIMES PER WEEK (MONDAY TO FRIDAY, ON THE LEFT SHOULDER)
     Route: 065
     Dates: start: 20190114, end: 20190225
  2. ALDARA [Suspect]
     Active Substance: IMIQUIMOD
     Indication: BASAL CELL CARCINOMA
     Dosage: THREE TIMES A WEEK (MONDAY, WEDNESDAY AND FRIDAY, IN THE FACE).
     Route: 065
     Dates: start: 20190114, end: 20190215

REACTIONS (4)
  - Adenocarcinoma of colon [Recovered/Resolved]
  - Blood count abnormal [Unknown]
  - Large intestinal ulcer [Recovered/Resolved]
  - Off label use [Unknown]

NARRATIVE: CASE EVENT DATE: 2019
